FAERS Safety Report 11584891 (Version 6)
Quarter: 2017Q2

REPORT INFORMATION
  Report Type: Report from Study
  Country: JP (occurrence: JP)
  Receive Date: 20151001
  Receipt Date: 20170514
  Transmission Date: 20170829
  Serious: Yes (Death, Hospitalization, Other)
  Sender: FDA-Public Use
  Company Number: PHJP2015JP016326

PATIENT
  Age: 62 Year
  Sex: Female

DRUGS (3)
  1. LENADEX [Suspect]
     Active Substance: DEXAMETHASONE ACETATE
     Indication: PLASMA CELL MYELOMA
     Dosage: 20 MG, UNK
     Route: 048
     Dates: start: 20150905, end: 20151002
  2. VELCADE [Suspect]
     Active Substance: BORTEZOMIB
     Indication: PLASMA CELL MYELOMA
     Dosage: 1.3 MG/M2, QW
     Route: 058
     Dates: start: 20150905, end: 20151002
  3. FARYDAK [Suspect]
     Active Substance: PANOBINOSTAT
     Indication: PLASMA CELL MYELOMA
     Dosage: 20 MG, QD (6 ADMINISTRATION PER CYCLE)
     Route: 048
     Dates: start: 20150905, end: 20151002

REACTIONS (9)
  - Dyspnoea [Unknown]
  - Palpitations [Unknown]
  - Tumour rupture [Unknown]
  - Somnolence [Not Recovered/Not Resolved]
  - Plasma cell myeloma [Fatal]
  - Malignant neoplasm progression [Fatal]
  - Cardiac failure acute [Recovered/Resolved]
  - Bone marrow failure [Unknown]
  - Cardiac failure acute [Recovered/Resolved]

NARRATIVE: CASE EVENT DATE: 20150912
